FAERS Safety Report 8455989-0 (Version None)
Quarter: 2012Q2

REPORT INFORMATION
  Report Type: 
  Country: None (occurrence: None)
  Receive Date: 20120621
  Receipt Date: 20120618
  Transmission Date: 20120825
  Serious: Yes (Life-Threatening, Hospitalization)
  Sender: FDA-Public Use
  Company Number: DE-ROCHE-1060283

PATIENT
  Age: 71 Year
  Sex: Male
  Weight: 103 kg

DRUGS (4)
  1. MICAFUNGIN [Suspect]
     Indication: PRODUCT USED FOR UNKNOWN INDICATION
  2. CEFTRIAXONE [Suspect]
     Indication: PRODUCT USED FOR UNKNOWN INDICATION
  3. VANCOMYCIN [Suspect]
     Indication: PRODUCT USED FOR UNKNOWN INDICATION
  4. IMIPENEM [Suspect]
     Indication: PRODUCT USED FOR UNKNOWN INDICATION

REACTIONS (1)
  - SUBACUTE HEPATIC FAILURE [None]
